FAERS Safety Report 8538149-4 (Version None)
Quarter: 2012Q3

REPORT INFORMATION
  Report Type: 
  Country: None (occurrence: None)
  Receive Date: 20120726
  Receipt Date: 20120713
  Transmission Date: 20120928
  Serious: Yes (Other)
  Sender: FDA-Public Use
  Company Number: DE-AMGEN-DEUSP2012005941

PATIENT
  Age: 40 Year
  Sex: Male
  Weight: 93 kg

DRUGS (4)
  1. OMEPRAZOLE [Concomitant]
     Indication: PROPHYLAXIS
     Dosage: UNK
  2. CORTISONE ACETATE [Concomitant]
     Dosage: 2 MG, 1X/DAY
  3. NAPROXEN [Concomitant]
     Dosage: 500 MG, 1X/DAY
  4. ENBREL [Suspect]
     Indication: RHEUMATOID ARTHRITIS
     Dosage: 50 MG, WEEKLY
     Route: 058
     Dates: start: 20090501

REACTIONS (3)
  - ABSCESS [None]
  - HYPERHIDROSIS [None]
  - PRURITUS [None]
